FAERS Safety Report 5305436-2 (Version None)
Quarter: 2007Q2

REPORT INFORMATION
  Report Type: 
  Country: None (occurrence: None)
  Receive Date: 20070424
  Receipt Date: 20070407
  Transmission Date: 20071010
  Serious: Yes (Other)
  Sender: FDA-Public Use
  Company Number: CA-JNJFOC-20070404523

PATIENT
  Age: 58 Year
  Sex: Female
  Weight: 81.65 kg

DRUGS (11)
  1. TYLENOL W/ CODEINE [Suspect]
     Indication: PAIN
  2. NICODERM [Suspect]
     Indication: SMOKING CESSATION THERAPY
     Route: 062
  3. TYLENOL (CAPLET) [Concomitant]
     Indication: ARTHRITIS
  4. GLUCONORM [Concomitant]
     Indication: DIABETES MELLITUS
     Route: 048
  5. METAMUCIL [Concomitant]
     Indication: IRRITABLE BOWEL SYNDROME
  6. MAGELLAN [Concomitant]
     Indication: IRRITABLE BOWEL SYNDROME
  7. SEROQUEL [Concomitant]
     Indication: NERVOUS SYSTEM DISORDER
  8. ACEBUTOLOL [Concomitant]
     Indication: CARDIAC DISORDER
     Route: 048
  9. ACETYLSALICYLIC ACID SRT [Concomitant]
     Indication: GASTRIC DISORDER
     Route: 048
  10. RAMIPRIL [Concomitant]
     Indication: CARDIAC DISORDER
     Route: 048
  11. CALCIUM [Concomitant]
     Indication: OSTEOPOROSIS

REACTIONS (4)
  - DYSSTASIA [None]
  - IRRITABILITY [None]
  - RIB FRACTURE [None]
  - TREMOR [None]
